FAERS Safety Report 5803356-8 (Version None)
Quarter: 2008Q2

REPORT INFORMATION
  Report Type: 
  Country: None (occurrence: None)
  Receive Date: 20080627
  Receipt Date: 20080207
  Transmission Date: 20081010
  Serious: Yes (Other)
  Sender: FDA-Public Use
  Company Number: 546271

PATIENT
  Age: 49 Year
  Sex: Female

DRUGS (4)
  1. INTERFERON ALFA [Suspect]
     Indication: HEPATITIS C VIRUS
     Dosage: 3 MILLIONIU 3 PER 1 WEEK SUBCUTANEOUS
     Route: 058
  2. RIBAVIRIN [Suspect]
     Indication: HEPATITIS C VIRUS
     Dosage: 1000 MG DAILY
  3. CITALOPRAM HYDROBROMIDE [Concomitant]
  4. ZOLPIDEM TARTRATE [Concomitant]

REACTIONS (1)
  - DEPRESSION [None]
